FAERS Safety Report 8498451-1 (Version None)
Quarter: 2012Q3

REPORT INFORMATION
  Report Type: 
  Country: None (occurrence: None)
  Receive Date: 20120709
  Receipt Date: 20120625
  Transmission Date: 20120928
  Serious: No
  Sender: FDA-Public Use
  Company Number: US-AMGEN-USASP2011010761

PATIENT
  Age: 68 Year
  Sex: Male
  Weight: 68.481 kg

DRUGS (6)
  1. LISINOPRIL [Concomitant]
     Indication: HYPERTENSION
     Dosage: UNK
     Route: 048
     Dates: start: 20090101
  2. HYDROXYCHLOROQUINE SULFATE [Concomitant]
     Indication: RHEUMATOID ARTHRITIS
     Dosage: 200 MG, UNK
     Route: 048
     Dates: start: 19930301
  3. PRED                               /00016201/ [Concomitant]
     Indication: RHEUMATOID ARTHRITIS
     Dosage: 2 MG, QD
     Route: 048
     Dates: start: 19910801
  4. IBUPROFEN [Concomitant]
     Indication: RHEUMATOID ARTHRITIS
     Dosage: 600 MG, QD
     Route: 048
     Dates: start: 19850101
  5. ENBREL [Suspect]
     Indication: RHEUMATOID ARTHRITIS
     Dosage: 50 MG, QWK
     Route: 058
     Dates: start: 19990501
  6. METHOTREXATE [Concomitant]
     Indication: RHEUMATOID ARTHRITIS
     Dosage: 12.5 MG, QWK
     Route: 048
     Dates: start: 19920301

REACTIONS (8)
  - FATIGUE [None]
  - NASOPHARYNGITIS [None]
  - SOMNOLENCE [None]
  - PARANASAL SINUS HYPERSECRETION [None]
  - MUSCULOSKELETAL PAIN [None]
  - DECREASED APPETITE [None]
  - ABDOMINAL DISCOMFORT [None]
  - ASTHENIA [None]
